FAERS Safety Report 8188076 (Version 3)
Quarter: 2013Q4

REPORT INFORMATION
  Report Type: Spontaneous
  Country: US (occurrence: US)
  Receive Date: 20111018
  Receipt Date: 20131016
  Transmission Date: 20140711
  Serious: Yes (Other)
  Sender: FDA-Public Use
  Company Number: US-ASTRAZENECA-2011SE02733

PATIENT
  Age: 64 Year
  Sex: Male
  Weight: 108.9 kg

DRUGS (5)
  1. SYMBICORT PMDI [Suspect]
     Indication: ASTHMA
     Dosage: 160/4.5 MCG, ONE PUFF, TWO TIMES A DAY.
     Route: 055
  2. SYMBICORT PMDI [Suspect]
     Indication: CHRONIC OBSTRUCTIVE PULMONARY DISEASE
     Dosage: 160/4.5 MCG, ONE PUFF, TWO TIMES A DAY.
     Route: 055
  3. SYMBICORT PMDI [Suspect]
     Indication: ASTHMA
     Dosage: 80/4.5 MCG, TWO PUFFS, TWO TIMES A DAY.
     Route: 055
  4. SYMBICORT PMDI [Suspect]
     Indication: CHRONIC OBSTRUCTIVE PULMONARY DISEASE
     Dosage: 80/4.5 MCG, TWO PUFFS, TWO TIMES A DAY.
     Route: 055
  5. PROAIR [Concomitant]

REACTIONS (6)
  - Foot fracture [Unknown]
  - Dyspnoea [Unknown]
  - Lung disorder [Unknown]
  - Headache [Unknown]
  - Off label use [Unknown]
  - Drug dose omission [Unknown]
